FAERS Safety Report 19191432 (Version 1)
Quarter: 2021Q2

REPORT INFORMATION
  Report Type: Spontaneous
  Country: US (occurrence: US)
  Receive Date: 20210429
  Receipt Date: 20210429
  Transmission Date: 20210717
  Serious: Yes (Other)
  Sender: FDA-Public Use
  Company Number: US-AMGEN-USASP2021063356

PATIENT
  Age: 67 Year
  Sex: Female

DRUGS (3)
  1. OTEZLA [Suspect]
     Active Substance: APREMILAST
     Indication: PSORIASIS
     Dosage: 30 MILLIGRAM, BID
     Route: 048
     Dates: start: 20200706
  2. DESOXIMETASONE. [Concomitant]
     Active Substance: DESOXIMETASONE
     Dosage: UNK
  3. CALCITRIOL. [Concomitant]
     Active Substance: CALCITRIOL
     Dosage: UNK

REACTIONS (1)
  - Thyroidectomy [Not Recovered/Not Resolved]

NARRATIVE: CASE EVENT DATE: 20210223
